FAERS Safety Report 9302228 (Version 2)
Quarter: 2013Q2

REPORT INFORMATION
  Report Type: Spontaneous
  Country: EE (occurrence: EE)
  Receive Date: 20130522
  Receipt Date: 20130610
  Transmission Date: 20140414
  Serious: Yes (Death, Hospitalization, Disabling)
  Sender: FDA-Public Use
  Company Number: EE-B.I. PHARMACEUTICALS,INC./RIDGEFIELD-2013-AP-00386AP

PATIENT
  Age: 80 Year
  Sex: Male

DRUGS (4)
  1. PRADAXA [Suspect]
     Indication: ATRIAL FIBRILLATION
     Dosage: 220 MG
     Route: 048
     Dates: start: 20130319, end: 20130418
  2. BETALOC [Concomitant]
     Indication: HYPERTENSION
     Dosage: 50 MG
     Route: 048
     Dates: start: 2008
  3. VERAPAMIL [Concomitant]
     Indication: HYPERTENSION
     Dosage: 80 MG
     Route: 048
     Dates: start: 2008
  4. DIGOXIN [Concomitant]
     Indication: HYPERTENSION
     Dosage: 0.125 MG
     Route: 048
     Dates: start: 2008

REACTIONS (2)
  - Renal impairment [Fatal]
  - Cerebrovascular accident [Fatal]
